FAERS Safety Report 9342833 (Version 3)
Quarter: 2014Q1

REPORT INFORMATION
  Report Type: Spontaneous
  Country: US (occurrence: US)
  Receive Date: 20130611
  Receipt Date: 20140210
  Transmission Date: 20141002
  Serious: Yes (Death, Hospitalization)
  Sender: FDA-Public Use
  Company Number: US-B.I. PHARMACEUTICALS,INC./RIDGEFIELD-2013-BI-16094BP

PATIENT
  Sex: Female
  Weight: 132.3 kg

DRUGS (13)
  1. PRADAXA [Suspect]
     Indication: PRODUCT USED FOR UNKNOWN INDICATION
     Dosage: 75 MG
     Dates: start: 20110819, end: 20120125
  2. MOVE FREE [Concomitant]
  3. PROAIR HFA [Concomitant]
     Dates: start: 2004
  4. POTASSIUM CL ER [Concomitant]
     Dosage: 10 MEQ
     Dates: start: 2004
  5. ASPIRIN [Concomitant]
     Dosage: 81 MG
  6. LURIC [Concomitant]
     Dosage: 800 MG
  7. LASIX [Concomitant]
     Dosage: 800 MG
  8. GLIPIZIDE [Concomitant]
     Dosage: 10 MG
  9. TOPROL XL [Concomitant]
  10. CRESTOR [Concomitant]
     Dosage: 10 MG
  11. ADVAIR DISKUS [Concomitant]
     Dosage: 2 PUF
  12. DIOVAN [Concomitant]
     Dosage: 160 MG
  13. DUONEB [Concomitant]

REACTIONS (5)
  - Gastrointestinal haemorrhage [Fatal]
  - Respiratory failure [Fatal]
  - Renal haemorrhage [Unknown]
  - Coagulopathy [Unknown]
  - Renal failure acute [Unknown]
